FAERS Safety Report 4861962-1 (Version None)
Quarter: 2005Q4

REPORT INFORMATION
  Report Type: 
  Country: None (occurrence: None)
  Receive Date: 20051130
  Receipt Date: 20050829
  Transmission Date: 20060501
  Serious: Yes (Other)
  Sender: FDA-Public Use
  Company Number: PHEH2005US07172

PATIENT
  Age: 48 Year
  Sex: Female

DRUGS (4)
  1. LAMISIL [Suspect]
     Indication: NAIL TINEA
     Dosage: 250 MG, QD, ORAL
     Route: 048
     Dates: start: 20050609, end: 20050626
  2. ZOCOR [Concomitant]
  3. PREVACID [Concomitant]
  4. PROTONIX [Concomitant]

REACTIONS (3)
  - FACE OEDEMA [None]
  - SWELLING FACE [None]
  - URTICARIA [None]
